FAERS Safety Report 25919826 (Version 1)
Quarter: 2025Q4

REPORT INFORMATION
  Report Type: Spontaneous
  Country: US (occurrence: US)
  Receive Date: 20251014
  Receipt Date: 20251014
  Transmission Date: 20260118
  Serious: Yes (Hospitalization)
  Sender: EVOKE PHARMA, INC.
  Company Number: US-EVOKE PHARMA, INC.-2025EVO000123

PATIENT

DRUGS (1)
  1. GIMOTI [Suspect]
     Active Substance: METOCLOPRAMIDE HYDROCHLORIDE
     Indication: Product used for unknown indication
     Dosage: 15 MILLIGRAM AS DIRECTED
     Route: 045
     Dates: start: 20250910, end: 20250916

REACTIONS (3)
  - Joint dislocation [Recovered/Resolved]
  - Restlessness [Recovered/Resolved]
  - Tardive dyskinesia [Recovered/Resolved]

NARRATIVE: CASE EVENT DATE: 20250913
